FAERS Safety Report 21128394 (Version 2)
Quarter: 2022Q3

REPORT INFORMATION
  Report Type: Spontaneous
  Country: US (occurrence: US)
  Receive Date: 20220725
  Receipt Date: 20220831
  Transmission Date: 20221026
  Serious: Yes (Hospitalization, Other)
  Sender: FDA-Public Use
  Company Number: US-PFIZER INC-202101216874

PATIENT
  Age: 55 Year
  Sex: Female

DRUGS (1)
  1. PREMARIN [Suspect]
     Active Substance: ESTROGENS, CONJUGATED
     Dosage: FOR 90 DAYS
     Route: 048

REACTIONS (8)
  - Sickle cell anaemia with crisis [Recovering/Resolving]
  - Neuropathy peripheral [Unknown]
  - Sickle cell disease [Unknown]
  - Cough [Unknown]
  - Hot flush [Unknown]
  - Irritability [Unknown]
  - Sickle cell anaemia [Unknown]
  - Prescription drug used without a prescription [Unknown]

NARRATIVE: CASE EVENT DATE: 20220708
